FAERS Safety Report 7056984-9 (Version None)
Quarter: 2010Q4

REPORT INFORMATION
  Report Type: 
  Country: None (occurrence: None)
  Receive Date: 20101022
  Receipt Date: 20101007
  Transmission Date: 20110411
  Serious: Yes (Hospitalization)
  Sender: FDA-Public Use
  Company Number: US-ASTRAZENECA-2009UW05417

PATIENT
  Sex: Male
  Weight: 165.6 kg

DRUGS (9)
  1. SEROQUEL [Suspect]
     Indication: ILL-DEFINED DISORDER
     Route: 048
  2. SEROQUEL [Suspect]
     Indication: DEPRESSION
     Route: 048
  3. SEROQUEL [Suspect]
     Route: 048
  4. SEROQUEL [Suspect]
     Route: 048
  5. SEROQUEL [Suspect]
     Route: 048
  6. SEROQUEL [Suspect]
     Route: 048
  7. ADDEROL [Concomitant]
  8. LORAZEPAM [Concomitant]
  9. PRAVASTATIN [Concomitant]

REACTIONS (11)
  - FLUID RETENTION [None]
  - MUSCLE SPASMS [None]
  - MUSCULAR WEAKNESS [None]
  - MUSCULOSKELETAL STIFFNESS [None]
  - NASAL CONGESTION [None]
  - NIGHT SWEATS [None]
  - OEDEMA PERIPHERAL [None]
  - STRESS [None]
  - TEMPERATURE INTOLERANCE [None]
  - TREMOR [None]
  - WEIGHT INCREASED [None]
